FAERS Safety Report 4679874-5 (Version None)
Quarter: 2005Q2

REPORT INFORMATION
  Report Type: 
  Country: None (occurrence: None)
  Receive Date: 20050602
  Receipt Date: 20041209
  Transmission Date: 20051028
  Serious: No
  Sender: FDA-Public Use
  Company Number: US-GLAXOSMITHKLINE-A0536764A

PATIENT
  Age: 57 Year
  Sex: Female

DRUGS (1)
  1. AUGMENTIN [Suspect]
     Indication: TOOTH INFECTION
     Dosage: 250MG THREE TIMES PER DAY
     Route: 048
     Dates: start: 20041204

REACTIONS (3)
  - DIZZINESS [None]
  - NAUSEA [None]
  - VOMITING [None]
